FAERS Safety Report 25857534 (Version 2)
Quarter: 2025Q4

REPORT INFORMATION
  Report Type: Spontaneous
  Country: MK (occurrence: MK)
  Receive Date: 20250929
  Receipt Date: 20251105
  Transmission Date: 20260117
  Serious: Yes (Death, Life-Threatening, Hospitalization)
  Sender: ACCORD
  Company Number: MK-Accord-506286

PATIENT
  Age: 41 Year
  Sex: Male
  Weight: 85 kg

DRUGS (5)
  1. MYCOPHENOLIC ACID [Suspect]
     Active Substance: MYCOPHENOLIC ACID
     Indication: Immunosuppressant drug therapy
     Dosage: 500MG - 2X1000MG
     Dates: start: 2019, end: 202409
  2. TACROLIMUS [Suspect]
     Active Substance: TACROLIMUS
     Indication: Immunosuppressant drug therapy
     Dosage: TACROLIMUS A 1MG/0.5MG- 1MG MORING AND 1.5MG AT NIGHT
     Dates: start: 2019
  3. PREDNISOLONE [Suspect]
     Active Substance: PREDNISOLONE
     Indication: Immunosuppressant drug therapy
     Dates: start: 2019
  4. PREDNISOLONE [Suspect]
     Active Substance: PREDNISOLONE
     Indication: Immunosuppressant drug therapy
     Dosage: 1X 7.5MG DAILY
     Dates: start: 2019
  5. TACROLIMUS [Suspect]
     Active Substance: TACROLIMUS
     Indication: Immunosuppressant drug therapy
     Dosage: TACROLIMUS A 1MG/0.5MG- 1MG MORING AND 1.5MG AT NIGHT
     Dates: start: 2019

REACTIONS (4)
  - Plasma cell myeloma [Unknown]
  - Cardiac failure acute [Fatal]
  - Pulmonary oedema [Fatal]
  - Organic brain syndrome [Unknown]

NARRATIVE: CASE EVENT DATE: 20240101
